FAERS Safety Report 7474564-8 (Version None)
Quarter: 2011Q2

REPORT INFORMATION
  Report Type: 
  Country: None (occurrence: None)
  Receive Date: 20110503
  Receipt Date: 20110419
  Transmission Date: 20111010
  Serious: Yes (Other)
  Sender: FDA-Public Use
  Company Number: 031474

PATIENT
  Sex: Female

DRUGS (1)
  1. LACOSAMIDE [Suspect]

REACTIONS (2)
  - ENCEPHALOPATHY [None]
  - ELECTROCARDIOGRAM QT PROLONGED [None]
